FAERS Safety Report 9113049 (Version 1)
Quarter: 2013Q1

REPORT INFORMATION
  Report Type: Spontaneous
  Country: US (occurrence: US)
  Receive Date: 20130211
  Receipt Date: 20130211
  Transmission Date: 20140127
  Serious: Yes (Other)
  Sender: FDA-Public Use
  Company Number: US-PFIZER INC-2013054339

PATIENT
  Age: 33 Year
  Sex: Female
  Weight: 60.32 kg

DRUGS (3)
  1. ADVIL [Suspect]
     Indication: HEADACHE
     Dosage: UNK, 2X/WEEK
     Dates: start: 2000
  2. ADVIL [Suspect]
     Indication: PAIN
  3. ADVIL [Suspect]
     Indication: DYSMENORRHOEA

REACTIONS (1)
  - Coeliac disease [Unknown]
